FAERS Safety Report 18235669 (Version 2)
Quarter: 2021Q3

REPORT INFORMATION
  Report Type: Spontaneous
  Country: CA (occurrence: CA)
  Receive Date: 20200905
  Receipt Date: 20210805
  Transmission Date: 20211014
  Serious: Yes (Hospitalization, Disabling, Other)
  Sender: FDA-Public Use
  Company Number: CA-ACCORD-199274

PATIENT
  Age: 4 Day
  Sex: Male

DRUGS (15)
  1. ONDANSETRON [Concomitant]
     Active Substance: ONDANSETRON
  2. PIPERACILLIN/TAZOBACTAM [Concomitant]
     Active Substance: PIPERACILLIN SODIUM\TAZOBACTAM SODIUM
     Dosage: NOT SPECIFIED
  3. DEXAMETHASONE. [Concomitant]
     Active Substance: DEXAMETHASONE
     Route: 014
  4. CARBOPLATIN. [Suspect]
     Active Substance: CARBOPLATIN
     Indication: CHEMOTHERAPY
     Dosage: SOLUTION INTRAVENOUS
     Route: 042
  5. AMPICILLIN [Concomitant]
     Active Substance: AMPICILLIN
  6. FLUCONAZOLE. [Concomitant]
     Active Substance: FLUCONAZOLE
  7. VANCOMYCIN [Concomitant]
     Active Substance: VANCOMYCIN
  8. TAZOCIN [Concomitant]
     Active Substance: PIPERACILLIN SODIUM\TAZOBACTAM SODIUM
     Dosage: INTRAVENOUS
  9. CARBOPLATIN. [Suspect]
     Active Substance: CARBOPLATIN
     Indication: CHEMOTHERAPY
     Dosage: SOLUTION INTRAVENOUS
     Route: 042
  10. BLEOMYCIN [Suspect]
     Active Substance: BLEOMYCIN SULFATE
     Indication: CHEMOTHERAPY
     Dosage: 2.0 UNITS
     Route: 042
  11. ETOPOSIDE. [Suspect]
     Active Substance: ETOPOSIDE
     Indication: CHEMOTHERAPY
     Route: 042
  12. ETOPOSIDE. [Suspect]
     Active Substance: ETOPOSIDE
     Indication: CHEMOTHERAPY
     Route: 042
  13. MORPHINE [Concomitant]
     Active Substance: MORPHINE
  14. ETOPOSIDE. [Suspect]
     Active Substance: ETOPOSIDE
     Indication: CHEMOTHERAPY
     Route: 042
  15. DEXMEDETOMIDINE/DEXMEDETOMIDINE HYDROCHLORIDE [Concomitant]
     Active Substance: DEXMEDETOMIDINE HYDROCHLORIDE

REACTIONS (8)
  - Monocyte count increased [Unknown]
  - Neutropenia [Unknown]
  - Neutrophil count increased [Unknown]
  - White blood cell count increased [Unknown]
  - Aplastic anaemia [Unknown]
  - Nausea [Unknown]
  - Pancytopenia [Unknown]
  - Thrombocytopenia [Unknown]
